FAERS Safety Report 8075347-0 (Version None)
Quarter: 2012Q1

REPORT INFORMATION
  Report Type: 
  Country: None (occurrence: None)
  Receive Date: 20120127
  Receipt Date: 20120117
  Transmission Date: 20120608
  Serious: Yes (Other)
  Sender: FDA-Public Use
  Company Number: GB-JNJFOC-20120106251

PATIENT

DRUGS (1)
  1. USTEKINUMAB [Suspect]
     Indication: PSORIASIS
     Dosage: THERAPY INITIATED AT WEEKS 0 AND 4 AND EVERY 12 WEEKS THEREAFTER.
     Route: 058

REACTIONS (1)
  - STAPHYLOCOCCAL INFECTION [None]
